FAERS Safety Report 10061463 (Version 10)
Quarter: 2017Q2

REPORT INFORMATION
  Report Type: Report from Study
  Country: CA (occurrence: CA)
  Receive Date: 20140407
  Receipt Date: 20170627
  Transmission Date: 20170829
  Serious: Yes (Hospitalization, Other)
  Sender: FDA-Public Use
  Company Number: CA-ROCHE-1374660

PATIENT
  Age: 65 Year
  Sex: Female

DRUGS (13)
  1. SPIRIVA [Concomitant]
     Active Substance: TIOTROPIUM BROMIDE MONOHYDRATE
  2. VENTOLIN [Concomitant]
     Active Substance: ALBUTEROL SULFATE
  3. OMALIZUMAB [Suspect]
     Active Substance: OMALIZUMAB
     Route: 058
     Dates: start: 20130228, end: 201404
  4. OMALIZUMAB [Suspect]
     Active Substance: OMALIZUMAB
     Indication: ASTHMA
     Route: 058
     Dates: start: 20130208, end: 201404
  5. PREDNISONE. [Suspect]
     Active Substance: PREDNISONE
     Route: 065
     Dates: start: 20140410
  6. ATROVENT [Concomitant]
     Active Substance: IPRATROPIUM BROMIDE
  7. CYANOCOBALAMIN INJECTIONS [Concomitant]
  8. PREDNISONE. [Suspect]
     Active Substance: PREDNISONE
     Dosage: QD
     Route: 065
     Dates: start: 20130507
  9. SINGULAIR [Concomitant]
     Active Substance: MONTELUKAST SODIUM
  10. PREDNISONE. [Suspect]
     Active Substance: PREDNISONE
     Indication: ASTHMA
     Route: 065
  11. PREDNISONE. [Suspect]
     Active Substance: PREDNISONE
     Route: 065
  12. ASCORBIC ACID. [Concomitant]
     Active Substance: ASCORBIC ACID
  13. SYMBICORT [Concomitant]
     Active Substance: BUDESONIDE\FORMOTEROL FUMARATE DIHYDRATE
     Dosage: 2 PUFFS
     Route: 065

REACTIONS (20)
  - Asthma [Unknown]
  - Oropharyngeal pain [Unknown]
  - Pneumonia [Unknown]
  - Lower respiratory tract infection [Recovered/Resolved]
  - Insomnia [Unknown]
  - Dyspnoea [Unknown]
  - Cough [Unknown]
  - Productive cough [Unknown]
  - Sensitivity to weather change [Unknown]
  - Weight decreased [Unknown]
  - Upper respiratory tract infection [Recovered/Resolved]
  - Malaise [Unknown]
  - Sneezing [Unknown]
  - Sleep apnoea syndrome [Unknown]
  - Rhinorrhoea [Unknown]
  - Weight increased [Unknown]
  - Pneumonia [Recovered/Resolved]
  - Respiratory tract congestion [Unknown]
  - Eyelid margin crusting [Unknown]
  - Dysphonia [Unknown]

NARRATIVE: CASE EVENT DATE: 20130502
